FAERS Safety Report 5205664-0 (Version None)
Quarter: 2007Q1

REPORT INFORMATION
  Report Type: 
  Country: None (occurrence: None)
  Receive Date: 20070105
  Receipt Date: 20070105
  Transmission Date: 20070707
  Serious: Yes (Hospitalization)
  Sender: FDA-Public Use
  Company Number: None

PATIENT
  Age: 68 Year
  Sex: Female
  Weight: 67 kg

DRUGS (12)
  1. WARFARIN SODIUM [Suspect]
     Indication: THROMBOSIS PROPHYLAXIS
     Dosage: 2.5 MG PO M-F , 5 MG S-S
     Route: 048
     Dates: start: 20060607, end: 20060723
  2. AMIODARONE HCL [Suspect]
     Indication: ATRIAL FIBRILLATION
     Dosage: 200 MG PO QD
     Route: 048
     Dates: start: 20060607
  3. ACETAMINOPHEN [Concomitant]
  4. ASPIRIN [Concomitant]
  5. DOCUSATE SODIUM [Concomitant]
  6. IBUPROFEN [Concomitant]
  7. LACTULOSE [Concomitant]
  8. LANSOPRAZOLE [Concomitant]
  9. LEVOFLOXACIN [Concomitant]
  10. METRONIDAZOLE [Concomitant]
  11. PRAVASTATIN [Concomitant]
  12. SENNA [Concomitant]

REACTIONS (9)
  - ABDOMINAL PAIN UPPER [None]
  - CHEST DISCOMFORT [None]
  - CONSTIPATION [None]
  - FAECES DISCOLOURED [None]
  - HAEMATOCHEZIA [None]
  - HAEMOGLOBIN DECREASED [None]
  - INTERNATIONAL NORMALISED RATIO INCREASED [None]
  - NAUSEA [None]
  - PNEUMONIA [None]
